FAERS Safety Report 13907667 (Version 1)
Quarter: 2017Q3

REPORT INFORMATION
  Report Type: Spontaneous
  Country: US (occurrence: US)
  Receive Date: 20170825
  Receipt Date: 20170825
  Transmission Date: 20171127
  Serious: No
  Sender: FDA-Public Use
  Company Number: US-ROCHE-1113668

PATIENT
  Sex: Female

DRUGS (3)
  1. PROVERA [Concomitant]
     Active Substance: MEDROXYPROGESTERONE ACETATE
  2. NUTROPIN [Suspect]
     Active Substance: SOMATROPIN
     Indication: HYPOPITUITARISM
     Route: 050
  3. PREMARIN [Concomitant]
     Active Substance: ESTROGENS, CONJUGATED

REACTIONS (6)
  - Peripheral swelling [Unknown]
  - Musculoskeletal pain [Unknown]
  - Hypercholesterolaemia [Unknown]
  - Fatigue [Unknown]
  - Insulin-like growth factor decreased [Unknown]
  - Bone density decreased [Unknown]
